FAERS Safety Report 10229732 (Version 4)
Quarter: 2016Q1

REPORT INFORMATION
  Report Type: Report from Study
  Country: CN (occurrence: CN)
  Receive Date: 20140611
  Receipt Date: 20160120
  Transmission Date: 20160525
  Serious: Yes (Hospitalization)
  Sender: FDA-Public Use
  Company Number: PHHY2014CN064183

PATIENT
  Age: 66 Year
  Sex: Female
  Weight: 80 kg

DRUGS (3)
  1. EXFORGE [Suspect]
     Active Substance: AMLODIPINE BESYLATE\VALSARTAN
     Indication: HYPERTENSION
     Dosage: 1 DF, QD (80 MG VALSA/ 5 MG AML)
     Route: 048
     Dates: start: 201105, end: 20140528
  2. ATORVASTATIN [Concomitant]
     Active Substance: ATORVASTATIN
     Indication: LIPIDS DECREASED
     Dosage: 20 MG, QD
     Route: 065
     Dates: start: 20140515, end: 20140528
  3. EDARAVONE [Concomitant]
     Active Substance: EDARAVONE
     Indication: CEREBRAL DISORDER
     Dosage: 30 MG, QD
     Route: 065
     Dates: start: 20140515, end: 20140528

REACTIONS (3)
  - Mouth ulceration [Not Recovered/Not Resolved]
  - Cerebral artery thrombosis [Not Recovered/Not Resolved]
  - Movement disorder [Unknown]

NARRATIVE: CASE EVENT DATE: 20140515
